FAERS Safety Report 15999198 (Version 2)
Quarter: 2019Q1

REPORT INFORMATION
  Report Type: Spontaneous
  Country: US (occurrence: US)
  Receive Date: 20190225
  Receipt Date: 20190306
  Transmission Date: 20190418
  Serious: Yes (Other)
  Sender: FDA-Public Use
  Company Number: US-PFIZER INC-2019084895

PATIENT

DRUGS (6)
  1. PRILOSEC [Suspect]
     Active Substance: OMEPRAZOLE MAGNESIUM
  2. PREVACID [Suspect]
     Active Substance: LANSOPRAZOLE
  3. PROTONIX [Suspect]
     Active Substance: PANTOPRAZOLE SODIUM
  4. DEXILANT [Suspect]
     Active Substance: DEXLANSOPRAZOLE
  5. NEXIUM [Suspect]
     Active Substance: ESOMEPRAZOLE MAGNESIUM
  6. PRILOSEC OTC [Suspect]
     Active Substance: OMEPRAZOLE MAGNESIUM

REACTIONS (1)
  - Chronic kidney disease [Unknown]
